FAERS Safety Report 5167323-2 (Version None)
Quarter: 2006Q4

REPORT INFORMATION
  Report Type: 
  Country: None (occurrence: None)
  Receive Date: 20061130
  Receipt Date: 20061117
  Transmission Date: 20070319
  Serious: Yes (Other)
  Sender: FDA-Public Use
  Company Number: 232740

PATIENT
  Age: 52 Year
  Sex: Female
  Weight: 57.6 kg

DRUGS (5)
  1. RITUXAN [Suspect]
     Indication: RHEUMATOID ARTHRITIS
     Dosage: INTRAVENOUS
     Route: 042
     Dates: start: 20060627
  2. FOLIC ACID [Concomitant]
  3. MULTIVITAMIN (MULTIVITAMINS NOS) [Concomitant]
  4. VITAMIN B6 [Concomitant]
  5. TYLENOL (CAPLET) [Concomitant]

REACTIONS (5)
  - CHILLS [None]
  - DEHYDRATION [None]
  - PAIN [None]
  - TREMOR [None]
  - TUBERCULOSIS [None]
